FAERS Safety Report 4831191-6 (Version None)
Quarter: 2005Q4

REPORT INFORMATION
  Report Type: 
  Country: None (occurrence: None)
  Receive Date: 20051118
  Receipt Date: 20051107
  Transmission Date: 20060501
  Serious: Yes (Other)
  Sender: FDA-Public Use
  Company Number: US-JNJFOC-20051102273

PATIENT
  Sex: Female
  Weight: 108.86 kg

DRUGS (21)
  1. DURAGESIC-100 [Suspect]
     Route: 062
  2. LASIX [Concomitant]
     Indication: FLUID RETENTION
     Route: 048
  3. PROTONIX [Concomitant]
     Indication: GASTROOESOPHAGEAL REFLUX DISEASE
     Route: 048
  4. ASPIRIN [Concomitant]
     Route: 048
  5. THEO-DUR [Concomitant]
     Indication: ASTHMA
     Route: 048
  6. POTASSIUM [Concomitant]
     Route: 048
  7. REGLAN [Concomitant]
     Route: 048
  8. LIDODERM [Concomitant]
     Indication: PAIN
     Route: 062
  9. ADVAIR DISKUS 100/50 [Concomitant]
     Route: 055
  10. ADVAIR DISKUS 100/50 [Concomitant]
     Indication: ASTHMA
     Dosage: 250 MCG FLUTICASONE PROPIONATE /50 MG SALMETEROL 1 INHALATION Q 24 HOURS.
     Route: 055
  11. GLUCOPHAGE [Concomitant]
     Route: 048
  12. NEURONTIN [Concomitant]
     Indication: NEURALGIA
     Route: 048
  13. NITROSTAT [Concomitant]
     Indication: ANGINA PECTORIS
     Route: 060
  14. ZYRTEC [Concomitant]
     Route: 048
  15. PLAVIX [Concomitant]
     Indication: ANTICOAGULANT THERAPY
     Route: 048
  16. ARTHROTEC [Concomitant]
     Route: 048
  17. ARTHROTEC [Concomitant]
     Indication: ARTHRITIS
     Route: 048
  18. LIPITOR [Concomitant]
     Route: 048
  19. IMIPRAMINE HCL [Concomitant]
     Indication: DEPRESSION
     Route: 048
  20. DOCUSATE SODIUM [Concomitant]
     Indication: CONSTIPATION
     Route: 048
  21. PREDNISONE [Concomitant]
     Indication: CHRONIC OBSTRUCTIVE PULMONARY DISEASE
     Route: 048

REACTIONS (12)
  - BACK PAIN [None]
  - DIABETES MELLITUS [None]
  - GASTROOESOPHAGEAL REFLUX DISEASE [None]
  - HIATUS HERNIA [None]
  - HYPERCHOLESTEROLAEMIA [None]
  - HYPERTENSION [None]
  - HYPERTRIGLYCERIDAEMIA [None]
  - HYPOCALCAEMIA [None]
  - LUNG DISORDER [None]
  - RECTAL POLYP [None]
  - VITAMIN D DECREASED [None]
  - VULVOVAGINAL MYCOTIC INFECTION [None]
